FAERS Safety Report 7729686-0 (Version None)
Quarter: 2011Q3

REPORT INFORMATION
  Report Type: 
  Country: None (occurrence: None)
  Receive Date: 20110906
  Receipt Date: 20110826
  Transmission Date: 20111222
  Serious: Yes (Hospitalization, Other)
  Sender: FDA-Public Use
  Company Number: US-BAYER-2011-011196

PATIENT
  Age: 32 Year
  Sex: Female
  Weight: 72.562 kg

DRUGS (6)
  1. YAZ [Suspect]
     Indication: PREMENSTRUAL SYNDROME
     Dosage: UNK
     Dates: start: 20070901, end: 20100101
  2. DROSPIRENONE AND ETHINYL ESTRADIOL [Suspect]
  3. DROSPIRENONE AND ETHINYL ESTRADIOL [Suspect]
     Indication: PREMENSTRUAL SYNDROME
     Dosage: UNK
     Dates: start: 20070901, end: 20100101
  4. YASMIN [Suspect]
     Indication: PREMENSTRUAL SYNDROME
     Dosage: UNK
     Dates: start: 20070901, end: 20100101
  5. YASMIN [Suspect]
  6. YAZ [Suspect]

REACTIONS (12)
  - INJURY [None]
  - GENERAL PHYSICAL HEALTH DETERIORATION [None]
  - BILIARY DYSKINESIA [None]
  - VOMITING [None]
  - GASTROINTESTINAL DISORDER [None]
  - GALLBLADDER DISORDER [None]
  - CHOLECYSTITIS CHRONIC [None]
  - PAIN [None]
  - EMOTIONAL DISTRESS [None]
  - ABDOMINAL PAIN UPPER [None]
  - GASTROOESOPHAGEAL REFLUX DISEASE [None]
  - ANXIETY [None]
